FAERS Safety Report 9049172 (Version 2)
Quarter: 2013Q2

REPORT INFORMATION
  Report Type: Spontaneous
  Country: FR (occurrence: FR)
  Receive Date: 20130205
  Receipt Date: 20130411
  Transmission Date: 20140414
  Serious: Yes (Other)
  Sender: FDA-Public Use
  Company Number: FR-ROCHE-1187718

PATIENT
  Age: 35 Year
  Sex: Female

DRUGS (6)
  1. XOLAIR [Suspect]
     Indication: ASTHMA
     Route: 058
     Dates: start: 20121206
  2. INEXIUM [Concomitant]
     Indication: GASTROOESOPHAGEAL REFLUX DISEASE
     Route: 065
     Dates: start: 2009
  3. SERETIDE DISKUS [Concomitant]
     Indication: ASTHMA
     Route: 065
     Dates: start: 2009
  4. SINGULAIR [Concomitant]
     Indication: ASTHMA
     Route: 065
     Dates: start: 2009
  5. KESTINLYO [Concomitant]
     Indication: RHINITIS ALLERGIC
     Route: 065
     Dates: start: 2009
  6. NASONEX [Concomitant]
     Indication: RHINITIS ALLERGIC
     Route: 065
     Dates: start: 2009

REACTIONS (1)
  - Deep vein thrombosis [Recovered/Resolved]
